FAERS Safety Report 20549500 (Version 1)
Quarter: 2022Q1

REPORT INFORMATION
  Report Type: Spontaneous
  Country: US (occurrence: US)
  Receive Date: 20220303
  Receipt Date: 20220303
  Transmission Date: 20220423
  Serious: No
  Sender: FDA-Public Use
  Company Number: US-ALLERGAN-2123674US

PATIENT
  Sex: Female

DRUGS (5)
  1. RESTASIS [Suspect]
     Active Substance: CYCLOSPORINE
     Indication: Dry eye
     Dosage: 1 GTT, BID
     Route: 047
  2. ATORVASTATIN [Concomitant]
     Active Substance: ATORVASTATIN
     Indication: Blood cholesterol increased
     Dosage: 20 MG TABLET  DAILY
     Route: 048
     Dates: start: 2019
  3. DEXILANT [Concomitant]
     Active Substance: DEXLANSOPRAZOLE
     Indication: Gastric ulcer
     Dosage: 60MG CAPSULE
     Route: 048
     Dates: start: 2016
  4. LISINOPRIL [Concomitant]
     Active Substance: LISINOPRIL
     Indication: Hypertension
     Dosage: 20 MG TABLET DAILY, 34 YEARS AGO
     Route: 048
  5. NITRO BID [Concomitant]
     Indication: Heart rate increased
     Dosage: AS NEEDED, 25 YEARS AGO
     Route: 048

REACTIONS (5)
  - Dry eye [Recovering/Resolving]
  - Visual impairment [Unknown]
  - Inability to afford medication [Unknown]
  - Therapy interrupted [Unknown]
  - Eye irritation [Recovering/Resolving]
